FAERS Safety Report 6566265-5 (Version None)
Quarter: 2010Q1

REPORT INFORMATION
  Report Type: 
  Country: None (occurrence: None)
  Receive Date: 20100127
  Receipt Date: 20100112
  Transmission Date: 20100710
  Serious: Yes (Hospitalization)
  Sender: FDA-Public Use
  Company Number: 2010000182

PATIENT
  Sex: Female
  Weight: 97.1 kg

DRUGS (3)
  1. ERLOTINIB HYDROCHLORIDE [Suspect]
     Indication: PANCREATIC CARCINOMA
     Dosage: (100 MG,QD), ORAL
     Route: 048
     Dates: start: 20091116
  2. GEMCITABINE [Suspect]
     Indication: PANCREATIC CARCINOMA
     Dosage: DAYS 1, 8 AND 15 ), INTRAVENOUS
     Route: 042
     Dates: start: 20091116
  3. IMC-AL2 [Suspect]
     Indication: PANCREATIC CARCINOMA
     Dosage: (6 MG/KG,DAYS 1, 8, 15 AND 22), INTRAVENOUS
     Route: 042
     Dates: start: 20091116

REACTIONS (6)
  - AORTIC VALVE INCOMPETENCE [None]
  - CHEST PAIN [None]
  - NAUSEA [None]
  - TRICUSPID VALVE INCOMPETENCE [None]
  - TROPONIN I INCREASED [None]
  - VOMITING [None]
